FAERS Safety Report 18575410 (Version 1)
Quarter: 2020Q4

REPORT INFORMATION
  Report Type: Spontaneous
  Country: ES (occurrence: ES)
  Receive Date: 20201203
  Receipt Date: 20201203
  Transmission Date: 20210114
  Serious: Yes (Other)
  Sender: FDA-Public Use
  Company Number: ES-MYLANLABS-2020M1098130

PATIENT
  Age: 16 Year
  Sex: Female

DRUGS (3)
  1. LEVETIRACETAM. [Suspect]
     Active Substance: LEVETIRACETAM
     Indication: PARTIAL SEIZURES
     Dosage: 500 MILLIGRAM, 2X/DAY (BID)
  2. VALPROATE [Suspect]
     Active Substance: VALPROIC ACID
     Dosage: UNK
     Dates: end: 201209
  3. VALPROATE [Suspect]
     Active Substance: VALPROIC ACID
     Indication: PARTIAL SEIZURES
     Dosage: UNK

REACTIONS (4)
  - Aggression [Unknown]
  - Mood swings [Unknown]
  - Seizure [Unknown]
  - Irritability [Recovered/Resolved]

NARRATIVE: CASE EVENT DATE: 2020
